FAERS Safety Report 24333164 (Version 1)
Quarter: 2024Q3

REPORT INFORMATION
  Report Type: Spontaneous
  Country: US (occurrence: US)
  Receive Date: 20240918
  Receipt Date: 20240918
  Transmission Date: 20241016
  Serious: Yes (Hospitalization)
  Sender: AMGEN
  Company Number: US-AMGEN-USASP2024183121

PATIENT

DRUGS (3)
  1. PROCRIT [Suspect]
     Active Substance: ERYTHROPOIETIN
     Indication: Dysplastic naevus syndrome
     Route: 065
  2. METHOTREXATE [Suspect]
     Active Substance: METHOTREXATE
     Indication: Psoriasis
     Dosage: UNK
     Route: 065
  3. TREMFYA [Concomitant]
     Active Substance: GUSELKUMAB
     Indication: Psoriasis
     Dosage: 100 MILLIGRAM PER MILLILITRE
     Route: 065
     Dates: start: 20240829

REACTIONS (4)
  - Blood disorder [Unknown]
  - Haemoglobin decreased [Unknown]
  - Adverse event [Unknown]
  - Psoriasis [Unknown]

NARRATIVE: CASE EVENT DATE: 20230401
